FAERS Safety Report 9415757 (Version 1)
Quarter: 2013Q3

REPORT INFORMATION
  Report Type: Spontaneous
  Country: US (occurrence: US)
  Receive Date: 20130724
  Receipt Date: 20130724
  Transmission Date: 20140515
  Serious: Yes (Hospitalization)
  Sender: FDA-Public Use
  Company Number: US-AMGEN-USASP2013051037

PATIENT
  Age: 67 Year
  Sex: Female

DRUGS (4)
  1. ENBREL [Suspect]
     Indication: PSORIATIC ARTHROPATHY
     Dosage: 25 MG, 2 TIMES/WK
     Route: 065
     Dates: start: 20010701
  2. ENBREL [Suspect]
     Indication: PSORIASIS
  3. IMURAN /00001501/ [Suspect]
     Dosage: UNK
  4. METHOTREXATE [Concomitant]
     Dosage: UNK

REACTIONS (9)
  - Hepatic cirrhosis [Recovered/Resolved]
  - Arthritis [Recovered/Resolved]
  - Aphagia [Recovered/Resolved]
  - Decreased appetite [Recovered/Resolved]
  - Vomiting [Recovered/Resolved]
  - Haemoglobin decreased [Recovered/Resolved]
  - Pain in extremity [Not Recovered/Not Resolved]
  - Ulcer haemorrhage [Recovered/Resolved]
  - Asthenia [Recovered/Resolved]
